FAERS Safety Report 12293109 (Version 4)
Quarter: 2016Q2

REPORT INFORMATION
  Report Type: Report from Study
  Country: US (occurrence: US)
  Receive Date: 20160421
  Receipt Date: 20160526
  Transmission Date: 20160815
  Serious: Yes (Other)
  Sender: FDA-Public Use
  Company Number: US-AMGEN-USASL2016047886

PATIENT
  Age: 63 Year
  Sex: Female
  Weight: 58.96 kg

DRUGS (4)
  1. REPATHA [Suspect]
     Active Substance: EVOLOCUMAB
     Indication: HYPERCHOLESTEROLAEMIA
     Dosage: 140 MG, Q2WK
     Route: 065
     Dates: start: 2016, end: 201604
  2. FENGEL [Concomitant]
     Indication: SKIN DISORDER
     Dosage: UNK UNK, QHS
     Dates: start: 2015
  3. ZANTAC [Concomitant]
     Active Substance: RANITIDINE HYDROCHLORIDE
     Indication: GASTROOESOPHAGEAL REFLUX DISEASE
     Dosage: 75 MG, AS NECESSARY
     Dates: start: 2015
  4. REPATHA [Suspect]
     Active Substance: EVOLOCUMAB
     Indication: TYPE IIA HYPERLIPIDAEMIA

REACTIONS (9)
  - Rash [Not Recovered/Not Resolved]
  - Neck pain [Unknown]
  - Erythema [Unknown]
  - Musculoskeletal pain [Not Recovered/Not Resolved]
  - Asthenia [Recovered/Resolved]
  - Sciatica [Not Recovered/Not Resolved]
  - Back pain [Recovered/Resolved]
  - Rash generalised [Not Recovered/Not Resolved]
  - Feeling abnormal [Unknown]

NARRATIVE: CASE EVENT DATE: 2016
